FAERS Safety Report 6030015-1 (Version None)
Quarter: 2009Q1

REPORT INFORMATION
  Report Type: 
  Country: None (occurrence: None)
  Receive Date: 20090105
  Receipt Date: 20090105
  Transmission Date: 20090719
  Serious: No
  Sender: FDA-Public Use
  Company Number: None

PATIENT
  Age: 61 Year
  Sex: Male
  Weight: 65.7716 kg

DRUGS (2)
  1. LEVAQUIN [Suspect]
     Indication: ASPIRATION BIOPSY
     Dosage: 1 TABLET DAILY FOR 3 DAYS PO
     Route: 048
     Dates: start: 20080730, end: 20080801
  2. LEVAQUIN [Suspect]
     Indication: ASPIRATION BIOPSY
     Dosage: 1 TABLET DAILY FOR 3 DAYS PO
     Route: 048
     Dates: start: 20081106, end: 20081107

REACTIONS (7)
  - ARTHRALGIA [None]
  - GAIT DISTURBANCE [None]
  - INSOMNIA [None]
  - JOINT STIFFNESS [None]
  - JOINT SWELLING [None]
  - MUSCULOSKELETAL PAIN [None]
  - TENDONITIS [None]
